FAERS Safety Report 8125561-0 (Version None)
Quarter: 2012Q1

REPORT INFORMATION
  Report Type: 
  Country: None (occurrence: None)
  Receive Date: 20120209
  Receipt Date: 20120126
  Transmission Date: 20120608
  Serious: Yes (Hospitalization)
  Sender: FDA-Public Use
  Company Number: US-UCBSA-050504

PATIENT
  Age: 43 Year
  Sex: Male
  Weight: 80.2 kg

DRUGS (13)
  1. CERTOLIZUMAB PEGOL [Suspect]
     Route: 058
     Dates: start: 20110620
  2. PREDNISONE [Concomitant]
     Route: 048
     Dates: start: 20110502
  3. CERTOLIZUMAB PEGOL [Suspect]
     Route: 058
     Dates: start: 20110531
  4. NAPROXEN [Concomitant]
     Indication: PAIN
     Route: 048
     Dates: start: 20110312
  5. FOLIC ACID [Concomitant]
     Indication: RHEUMATOID ARTHRITIS
     Route: 048
     Dates: start: 20110312
  6. CERTOLIZUMAB PEGOL [Suspect]
     Indication: RHEUMATOID ARTHRITIS
     Dosage: 200 MG
     Route: 058
     Dates: start: 20110711
  7. FOLIC ACID [Concomitant]
     Indication: BONE DISORDER
     Route: 048
     Dates: start: 20110312
  8. CITRACAL [Concomitant]
     Indication: SUPPLEMENTATION THERAPY
     Route: 048
     Dates: start: 20100501
  9. CERTOLIZUMAB PEGOL [Suspect]
     Route: 058
     Dates: start: 20110627
  10. FOLIC ACID [Concomitant]
     Indication: VITAMIN SUPPLEMENTATION
     Route: 048
     Dates: start: 20110312
  11. CENTRUM [Concomitant]
     Indication: SUPPLEMENTATION THERAPY
     Route: 048
     Dates: start: 20100501
  12. PREDNISONE [Concomitant]
     Indication: RHEUMATOID ARTHRITIS
     Route: 048
     Dates: start: 20100120
  13. CLARITIN [Concomitant]
     Indication: HYPERSENSITIVITY
     Route: 048
     Dates: start: 20110919

REACTIONS (1)
  - INFECTION [None]
